FAERS Safety Report 7342778-3 (Version None)
Quarter: 2011Q1

REPORT INFORMATION
  Report Type: 
  Country: None (occurrence: None)
  Receive Date: 20110310
  Receipt Date: 20101227
  Transmission Date: 20110831
  Serious: Yes (Hospitalization, Other)
  Sender: FDA-Public Use
  Company Number: US-BAYER-200938995NA

PATIENT
  Sex: Female
  Weight: 52 kg

DRUGS (8)
  1. MACROBID [Concomitant]
     Indication: DYSURIA
  2. ADVIL [Concomitant]
     Indication: PRODUCT USED FOR UNKNOWN INDICATION
     Dosage: UNK
     Dates: start: 20060101, end: 20090101
  3. VITAMIN B-12 [Concomitant]
     Indication: PRODUCT USED FOR UNKNOWN INDICATION
  4. YAZ [Suspect]
     Dosage: UNK
     Route: 048
     Dates: start: 20070701, end: 20090914
  5. YASMIN [Suspect]
     Indication: PRODUCT USED FOR UNKNOWN INDICATION
  6. MACROBID [Concomitant]
     Indication: MICTURITION URGENCY
  7. ANTIBIOTICS [Concomitant]
     Indication: PRODUCT USED FOR UNKNOWN INDICATION
     Dates: start: 19940101, end: 20090615
  8. NSAID'S [Concomitant]

REACTIONS (9)
  - CHOLECYSTITIS CHRONIC [None]
  - LIVER FUNCTION TEST ABNORMAL [None]
  - GASTRITIS [None]
  - ABDOMINAL PAIN UPPER [None]
  - CHRONIC HEPATITIS [None]
  - PANCREATIC ENZYMES INCREASED [None]
  - APPENDICITIS [None]
  - NAUSEA [None]
  - VOMITING [None]
